FAERS Safety Report 10160420 (Version 1)
Quarter: 2014Q2

REPORT INFORMATION
  Report Type: Spontaneous
  Country: BE (occurrence: BE)
  Receive Date: 20140508
  Receipt Date: 20140508
  Transmission Date: 20141212
  Serious: Yes (Hospitalization)
  Sender: FDA-Public Use
  Company Number: BE-PFIZER INC-2014123303

PATIENT
  Age: 82 Year
  Sex: Male
  Weight: 99 kg

DRUGS (2)
  1. DIFLUCAN [Suspect]
     Indication: ORAL CANDIDIASIS
     Dosage: 100 MG, 1X/DAY
     Route: 048
     Dates: start: 20140403, end: 20140408
  2. COLCHICINE [Interacting]
     Indication: GOUT
     Dosage: 1 MG, 4X/DAY
     Route: 048
     Dates: start: 20140304, end: 20140409

REACTIONS (2)
  - Drug interaction [Recovered/Resolved]
  - Drug-induced liver injury [Recovered/Resolved]
